FAERS Safety Report 16060675 (Version 1)
Quarter: 2019Q1

REPORT INFORMATION
  Report Type: Spontaneous
  Country: US (occurrence: US)
  Receive Date: 20190211
  Receipt Date: 20190211
  Transmission Date: 20190418
  Serious: No
  Sender: FDA-Public Use
  Company Number: None

PATIENT
  Sex: Female

DRUGS (1)
  1. HUMIRA [Suspect]
     Active Substance: ADALIMUMAB
     Indication: CROHN^S DISEASE
     Dosage: ?          OTHER DOSE:40MG/0.8ML;?
     Dates: start: 20190207, end: 20190208

REACTIONS (9)
  - Sinus pain [None]
  - Rash [None]
  - Upper respiratory tract infection [None]
  - Inflammation [None]
  - Hyperhidrosis [None]
  - Pruritus [None]
  - Lymphadenopathy [None]
  - Pyrexia [None]
  - Fatigue [None]
